FAERS Safety Report 16879512 (Version 2)
Quarter: 2019Q4

REPORT INFORMATION
  Report Type: Report from Study
  Country: MX (occurrence: MX)
  Receive Date: 20191003
  Receipt Date: 20191017
  Transmission Date: 20200122
  Serious: Yes (Other)
  Sender: FDA-Public Use
  Company Number: PHHY2019MX227378

PATIENT
  Sex: Male
  Weight: 73 kg

DRUGS (1)
  1. TEGRETOL [Suspect]
     Active Substance: CARBAMAZEPINE
     Indication: TRIGEMINAL NERVE DISORDER
     Dosage: 200 MG, QD (20 YEARS AGO)
     Route: 048

REACTIONS (4)
  - Hypertension [Not Recovered/Not Resolved]
  - Infarction [Recovered/Resolved]
  - Arteriosclerosis [Unknown]
  - Cardiac failure [Unknown]
